FAERS Safety Report 8762661 (Version 1)
Quarter: 2012Q4

REPORT INFORMATION
  Report Type: 
  Country: US (occurrence: US)
  Receive Date: 20120830
  Receipt Date: 20120830
  Transmission Date: 20130627
  Serious: No
  Sender: FDA-Public Use
  Company Number: US-PFIZER INC-2012211340

PATIENT
  Age: 50 Year
  Sex: Female
  Weight: 68.03 kg

DRUGS (6)
  1. NEURONTIN [Suspect]
     Indication: PAIN
     Dosage: 100 mg, 3x/day
     Dates: start: 2011
  2. NEURONTIN [Suspect]
     Dosage: 300 mg, 3x/day
     Dates: end: 201206
  3. METFORMIN [Concomitant]
     Indication: DIABETES MELLITUS
     Dosage: 500 mg, 2x/day
     Dates: start: 2011
  4. ENALAPRIL [Concomitant]
     Indication: HYPERTENSION
     Dosage: 5 mg, daily
  5. ENALAPRIL [Concomitant]
     Dosage: 10 mg, daily
  6. LOVASTATIN [Concomitant]
     Indication: BLOOD CHOLESTEROL INCREASED
     Dosage: 10 mg, daily

REACTIONS (1)
  - Feeling abnormal [Recovered/Resolved]
